FAERS Safety Report 9991602 (Version 1)
Quarter: 2014Q1

REPORT INFORMATION
  Report Type: Spontaneous
  Country: US (occurrence: US)
  Receive Date: 20140310
  Receipt Date: 20140310
  Transmission Date: 20141002
  Serious: Yes (Other)
  Sender: FDA-Public Use
  Company Number: US-PFIZER INC-2014068365

PATIENT
  Age: 70 Year
  Sex: Female
  Weight: 108.84 kg

DRUGS (3)
  1. CELEBREX [Suspect]
     Indication: ARTHRITIS
     Dosage: UNK,1X/DAY
     Route: 048
  2. CELEBREX [Suspect]
     Dosage: UNK,2X/DAY
     Route: 048
  3. BUTALBITAL W/ASPIRIN,CAFFEINE [Concomitant]
     Indication: MIGRAINE
     Dosage: UNK

REACTIONS (3)
  - Road traffic accident [Unknown]
  - Musculoskeletal disorder [Unknown]
  - Lichen sclerosus [Unknown]
